FAERS Safety Report 6189732-5 (Version None)
Quarter: 2009Q2

REPORT INFORMATION
  Report Type: 
  Country: None (occurrence: None)
  Receive Date: 20090514
  Receipt Date: 20090508
  Transmission Date: 20091009
  Serious: Yes (Other)
  Sender: FDA-Public Use
  Company Number: RS-ROCHE-632336

PATIENT
  Sex: Male

DRUGS (5)
  1. CAPECITABINE [Suspect]
     Indication: COLORECTAL CANCER
     Dosage: RECIVED THREE CYCLES OF THERAPY
     Route: 048
  2. CAPECITABINE [Suspect]
     Dosage: RECIVED TWO MORE CYCLES OF THERAPY
     Route: 048
     Dates: end: 20081115
  3. BEVACIZUMAB [Suspect]
     Indication: COLORECTAL CANCER
     Dosage: FORM: INFUSION, RECEIVED FIRST 5 CYCLES OF THE THERAPY
     Route: 042
     Dates: start: 20080818, end: 20081115
  4. ELOXATIN [Suspect]
     Indication: COLORECTAL CANCER
     Dosage: RECIVED THREE CYCLES OF THERAPY
     Route: 065
  5. ELOXATIN [Suspect]
     Dosage: RECIVED TWO MORE CYCLES OF THERAPY
     Route: 065
     Dates: end: 20081115

REACTIONS (4)
  - GASTROINTESTINAL INFLAMMATION [None]
  - ILEUS [None]
  - NEUTROPENIA [None]
  - THROMBOCYTOPENIA [None]
